FAERS Safety Report 25585339 (Version 5)
Quarter: 2025Q4

REPORT INFORMATION
  Report Type: Report from Study
  Country: AU (occurrence: AU)
  Receive Date: 20250721
  Receipt Date: 20251104
  Transmission Date: 20260119
  Serious: Yes (Hospitalization)
  Sender: NOVARTIS
  Company Number: AU-002147023-NVSC2025AU114173

PATIENT
  Age: 10 Year
  Sex: Male
  Weight: 38 kg

DRUGS (3)
  1. MEKINIST [Suspect]
     Active Substance: TRAMETINIB DIMETHYL SULFOXIDE
     Indication: FGFR1 gene mutation
     Dosage: 0.95 MG, QD
     Route: 048
     Dates: start: 20250509, end: 20250711
  2. MEKINIST [Suspect]
     Active Substance: TRAMETINIB DIMETHYL SULFOXIDE
     Indication: Neurofibromatosis
  3. MEKINIST [Suspect]
     Active Substance: TRAMETINIB DIMETHYL SULFOXIDE
     Indication: Glioma

REACTIONS (4)
  - Spinal cord haemorrhage [Unknown]
  - Back pain [Unknown]
  - Cyst [Unknown]
  - Disease progression [Unknown]

NARRATIVE: CASE EVENT DATE: 20250707
